FAERS Safety Report 4557573-8 (Version None)
Quarter: 2005Q1

REPORT INFORMATION
  Report Type: 
  Country: None (occurrence: None)
  Receive Date: 20050120
  Receipt Date: 20040126
  Transmission Date: 20050727
  Serious: Yes (Hospitalization, Disabling, Other)
  Sender: FDA-Public Use
  Company Number: US-MERCK-0401USA01976

PATIENT
  Age: 55 Year
  Sex: Female
  Weight: 105 kg

DRUGS (8)
  1. VIOXX [Suspect]
     Indication: ARTHRITIS
     Route: 048
     Dates: start: 20011101, end: 20020205
  2. VIOXX [Suspect]
     Indication: ARTHRALGIA
     Route: 048
     Dates: start: 20011101, end: 20020205
  3. NEURONTIN [Concomitant]
     Route: 048
  4. ULTRAM [Concomitant]
     Route: 048
  5. DOXEPIN HYDROCHLORIDE [Concomitant]
     Route: 065
  6. ZANAFLEX [Concomitant]
     Route: 065
  7. SERZONE [Concomitant]
     Route: 048
  8. ACETAMINOPHEN AND OXYCODONE HYDROCHLORIDE [Concomitant]
     Indication: HEADACHE
     Route: 048

REACTIONS (44)
  - ACUTE CORONARY SYNDROME [None]
  - ACUTE MYOCARDIAL INFARCTION [None]
  - AORTIC DILATATION [None]
  - BACK PAIN [None]
  - CELLULITIS [None]
  - CEREBRAL ATHEROSCLEROSIS [None]
  - CHEST PAIN [None]
  - CONVULSION [None]
  - CORONARY ARTERY DISEASE [None]
  - DIZZINESS [None]
  - DRUG HYPERSENSITIVITY [None]
  - DRUG INEFFECTIVE [None]
  - DYSPEPSIA [None]
  - DYSPHAGIA [None]
  - DYSPNOEA [None]
  - EAR PAIN [None]
  - ERUCTATION [None]
  - FALL [None]
  - FATIGUE [None]
  - GENERALISED ANXIETY DISORDER [None]
  - HAEMORRHAGE INTRACRANIAL [None]
  - HEADACHE [None]
  - HIATUS HERNIA [None]
  - HYPERSENSITIVITY [None]
  - HYPERTENSION [None]
  - HYPOAESTHESIA [None]
  - INSOMNIA [None]
  - JOINT EFFUSION [None]
  - JOINT INJURY [None]
  - JOINT SPRAIN [None]
  - LOCAL SWELLING [None]
  - OESOPHAGITIS [None]
  - PAIN [None]
  - PANIC ATTACK [None]
  - PHARYNGOLARYNGEAL PAIN [None]
  - PSORIASIS [None]
  - PULMONARY CONGESTION [None]
  - RETINAL ISCHAEMIA [None]
  - RHINITIS [None]
  - RHINITIS ALLERGIC [None]
  - SLEEP APNOEA SYNDROME [None]
  - VENTRICULAR EXTRASYSTOLES [None]
  - VISUAL ACUITY REDUCED [None]
  - VISUAL DISTURBANCE [None]
